FAERS Safety Report 8196338-5 (Version None)
Quarter: 2012Q1

REPORT INFORMATION
  Report Type: 
  Country: None (occurrence: None)
  Receive Date: 20120309
  Receipt Date: 20120306
  Transmission Date: 20120608
  Serious: No
  Sender: FDA-Public Use
  Company Number: US-PFIZER INC-2012047942

PATIENT
  Sex: Male

DRUGS (4)
  1. ADVAIR DISKUS 100/50 [Concomitant]
     Dosage: UNK
  2. NOVOLOG [Concomitant]
     Dosage: UNK
  3. CHANTIX [Suspect]
     Dosage: UNK
     Route: 048
  4. LANTUS [Concomitant]
     Dosage: UNK

REACTIONS (2)
  - VISUAL ACUITY REDUCED [None]
  - THINKING ABNORMAL [None]
